FAERS Safety Report 9897109 (Version 1)
Quarter: 2014Q1

REPORT INFORMATION
  Report Type: Spontaneous
  Country: CA (occurrence: CA)
  Receive Date: 20140214
  Receipt Date: 20140214
  Transmission Date: 20141002
  Serious: Yes (Hospitalization)
  Sender: FDA-Public Use
  Company Number: CA-ROCHE-1349339

PATIENT
  Sex: Female

DRUGS (4)
  1. XOLAIR [Suspect]
     Indication: ASTHMA
     Route: 058
     Dates: start: 20130603
  2. VENTOLIN [Concomitant]
  3. SYMBICORT [Concomitant]
  4. SINGULAIR [Concomitant]

REACTIONS (4)
  - Pneumonia [Unknown]
  - Urinary bladder haemorrhage [Unknown]
  - Renal disorder [Unknown]
  - Chest discomfort [Recovered/Resolved]
